FAERS Safety Report 9716418 (Version 1)
Quarter: 2013Q4

REPORT INFORMATION
  Report Type: Spontaneous
  Country: US (occurrence: None)
  Receive Date: 20131126
  Receipt Date: 20131126
  Transmission Date: 20140711
  Serious: Yes (Hospitalization)
  Sender: FDA-Public Use
  Company Number: None

PATIENT
  Sex: Female
  Weight: 26.8 kg

DRUGS (3)
  1. CYTARABINE [Suspect]
  2. G-CSF [Suspect]
  3. PEG-L-ASPARAGINASE (K-H) [Suspect]

REACTIONS (6)
  - Hypotension [None]
  - Hyponatraemia [None]
  - Vomiting [None]
  - Septic embolus [None]
  - Pulmonary haemorrhage [None]
  - Cardio-respiratory arrest [None]
